FAERS Safety Report 5426098-X (Version None)
Quarter: 2007Q3

REPORT INFORMATION
  Report Type: 
  Country: None (occurrence: None)
  Receive Date: 20070823
  Receipt Date: 20070823
  Transmission Date: 20080115
  Serious: Yes (Other)
  Sender: FDA-Public Use
  Company Number: None

PATIENT
  Age: 76 Year
  Sex: Male

DRUGS (1)
  1. DIPHENHYDRAMINE HCL [Suspect]

REACTIONS (8)
  - APHASIA [None]
  - BLOOD GLUCOSE INCREASED [None]
  - BLOOD PRESSURE [None]
  - BLOOD PRESSURE SYSTOLIC INCREASED [None]
  - GRIP STRENGTH DECREASED [None]
  - LOSS OF CONSCIOUSNESS [None]
  - RESPIRATORY DISTRESS [None]
  - SEDATION [None]
